FAERS Safety Report 5372110-6 (Version None)
Quarter: 2007Q2

REPORT INFORMATION
  Report Type: 
  Country: None (occurrence: None)
  Receive Date: 20070615
  Receipt Date: 20070328
  Transmission Date: 20071010
  Serious: No
  Sender: FDA-Public Use
  Company Number: SP01190

PATIENT
  Age: 66 Year
  Sex: Female
  Weight: 163 kg

DRUGS (6)
  1. XIFAXAN                      (200 MILLIGRAM) [Suspect]
     Indication: IRRITABLE BOWEL SYNDROME
     Dosage: 600 MG (200 MG, 3 IN 1 D), ORAL
     Route: 048
     Dates: start: 20070320
  2. PROBIOTIC # 1 [Concomitant]
  3. PROBIOTIC #2 [Concomitant]
  4. CRANBERRY TABLETS [Concomitant]
  5. ASPIRIN [Concomitant]
  6. HYDROCHLOROTHIAZIDE [Concomitant]

REACTIONS (1)
  - DIARRHOEA [None]
